FAERS Safety Report 12943367 (Version 2)
Quarter: 2017Q1

REPORT INFORMATION
  Report Type: Spontaneous
  Country: US (occurrence: US)
  Receive Date: 20161115
  Receipt Date: 20170308
  Transmission Date: 20170428
  Serious: Yes (Other)
  Sender: FDA-Public Use
  Company Number: US-GLAXOSMITHKLINE-US2016GSK167762

PATIENT
  Sex: Male

DRUGS (1)
  1. AVANDIA [Suspect]
     Active Substance: ROSIGLITAZONE MALEATE
     Indication: DIABETES MELLITUS
     Dosage: UNK
     Route: 048

REACTIONS (21)
  - Gait disturbance [Unknown]
  - Palpitations [Unknown]
  - Wound secretion [Unknown]
  - Eye disorder [Unknown]
  - Macular oedema [Unknown]
  - Heart rate increased [Unknown]
  - Vomiting [Unknown]
  - Oedema [Unknown]
  - Cardiovascular disorder [Unknown]
  - Lymphoedema [Unknown]
  - Multiple fractures [Unknown]
  - Chromaturia [Unknown]
  - Peripheral swelling [Unknown]
  - Yellow skin [Unknown]
  - Abdominal pain [Unknown]
  - Skin ulcer [Unknown]
  - Cellulitis [Unknown]
  - Dyspnoea [Unknown]
  - Nausea [Unknown]
  - Pain in extremity [Unknown]
  - Auditory disorder [Unknown]
